FAERS Safety Report 11806470 (Version 2)
Quarter: 2016Q1

REPORT INFORMATION
  Report Type: Spontaneous
  Country: US (occurrence: US)
  Receive Date: 20151207
  Receipt Date: 20160120
  Transmission Date: 20160525
  Serious: Yes (Hospitalization)
  Sender: FDA-Public Use
  Company Number: US-PFIZER INC-2015415804

PATIENT
  Age: 71 Year
  Sex: Female

DRUGS (15)
  1. REVATIO [Suspect]
     Active Substance: SILDENAFIL CITRATE
     Indication: RAYNAUD^S PHENOMENON
     Dosage: 20 MG, 3X/DAY
     Dates: start: 2014
  2. PLAQUENIL [Concomitant]
     Active Substance: HYDROXYCHLOROQUINE SULFATE
     Dosage: UNK
     Dates: start: 1995
  3. JANUMET [Concomitant]
     Active Substance: METFORMIN HYDROCHLORIDE\SITAGLIPTIN PHOSPHATE
     Dosage: UNK
     Dates: start: 2015
  4. PREDNISONE. [Concomitant]
     Active Substance: PREDNISONE
     Dosage: UNK
     Dates: start: 1995
  5. LISINOPRIL. [Concomitant]
     Active Substance: LISINOPRIL
     Dosage: UNK
     Dates: start: 2014
  6. METFORMIN [Concomitant]
     Active Substance: METFORMIN HYDROCHLORIDE
     Dosage: UNK
     Dates: start: 2014
  7. GABAPENTIN. [Concomitant]
     Active Substance: GABAPENTIN
     Dosage: UNK
     Dates: start: 2015
  8. OMEPRAZOLE. [Concomitant]
     Active Substance: OMEPRAZOLE
     Dosage: UNK
     Dates: start: 1995
  9. SALAGEN [Concomitant]
     Active Substance: PILOCARPINE HYDROCHLORIDE
     Dosage: UNK
     Dates: start: 1995
  10. DULOXETINE. [Concomitant]
     Active Substance: DULOXETINE
     Dosage: UNK
     Dates: start: 1995
  11. URSODIOL. [Concomitant]
     Active Substance: URSODIOL
     Dosage: UNK
     Dates: start: 1995
  12. PILOCARPINE. [Concomitant]
     Active Substance: PILOCARPINE
     Dosage: UNK
     Dates: start: 1995
  13. HYDROXYCHLOROQUINE [Concomitant]
     Active Substance: HYDROXYCHLOROQUINE
     Dosage: UNK
     Dates: start: 1995
  14. ESCITALOPRAM [Concomitant]
     Active Substance: ESCITALOPRAM OXALATE
     Dosage: UNK
     Dates: start: 2014
  15. NIFEDICAL XL [Concomitant]
     Active Substance: NIFEDIPINE
     Dosage: UNK
     Dates: start: 1995

REACTIONS (3)
  - Fall [Not Recovered/Not Resolved]
  - Product use issue [Unknown]
  - Spinal fracture [Unknown]

NARRATIVE: CASE EVENT DATE: 20150802
